FAERS Safety Report 17551413 (Version 1)
Quarter: 2020Q1

REPORT INFORMATION
  Report Type: Report from Study
  Country: GB (occurrence: GB)
  Receive Date: 20200317
  Receipt Date: 20200317
  Transmission Date: 20200409
  Serious: Yes (Other)
  Sender: FDA-Public Use
  Company Number: NVSC2020GB051173

PATIENT
  Sex: Female

DRUGS (2)
  1. ERELZI [Suspect]
     Active Substance: ETANERCEPT-SZZS
     Indication: RHEUMATOID ARTHRITIS
     Dosage: 1 DF, QW
     Route: 058
  2. METHOTREXATE. [Suspect]
     Active Substance: METHOTREXATE
     Indication: PRODUCT USED FOR UNKNOWN INDICATION
     Route: 065

REACTIONS (11)
  - Diabetes mellitus [Unknown]
  - Fibromyalgia [Unknown]
  - Dysgeusia [Unknown]
  - Xanthopsia [Unknown]
  - Eye pain [Unknown]
  - Drug ineffective [Unknown]
  - Weight increased [Unknown]
  - Product dose omission [Unknown]
  - Rheumatoid arthritis [Unknown]
  - Stress [Unknown]
  - Malaise [Unknown]
